FAERS Safety Report 17879834 (Version 1)
Quarter: 2020Q2

REPORT INFORMATION
  Report Type: Spontaneous
  Country: US (occurrence: US)
  Receive Date: 20200609
  Receipt Date: 20200609
  Transmission Date: 20200714
  Serious: Yes (Hospitalization)
  Sender: FDA-Public Use
  Company Number: None

PATIENT
  Sex: Female

DRUGS (27)
  1. METHOTREXATE 2 5MG [Suspect]
     Active Substance: METHOTREXATE
     Indication: PSORIATIC ARTHROPATHY
     Route: 048
     Dates: start: 202002
  2. EZETIMIBE. [Concomitant]
     Active Substance: EZETIMIBE
  3. METOPROLOL TARTRATE. [Concomitant]
     Active Substance: METOPROLOL TARTRATE
  4. VIOS [Concomitant]
  5. FLUCONAZOLE. [Concomitant]
     Active Substance: FLUCONAZOLE
  6. KETOCONAZOLE. [Concomitant]
     Active Substance: KETOCONAZOLE
  7. FOLIC ACID. [Concomitant]
     Active Substance: FOLIC ACID
  8. CEPHALEXIN. [Concomitant]
     Active Substance: CEPHALEXIN
  9. LEVOFLOXACIN. [Concomitant]
     Active Substance: LEVOFLOXACIN
  10. SILVER SULFA [Concomitant]
  11. ESOMEPRA [Concomitant]
     Active Substance: ESOMEPRAZOLE
  12. NORTRIPTYLIN [Concomitant]
     Active Substance: NORTRIPTYLINE
  13. AMOX/K CLAV [Concomitant]
     Active Substance: AMOXICILLIN\CLAVULANATE POTASSIUM
  14. MONTELUKAST [Concomitant]
     Active Substance: MONTELUKAST SODIUM
  15. PREDNISONE. [Concomitant]
     Active Substance: PREDNISONE
  16. RALOXIFENE. [Concomitant]
     Active Substance: RALOXIFENE
  17. GABAPENTIN. [Concomitant]
     Active Substance: GABAPENTIN
  18. IPRATROPIUM/SOL ALBUTER [Concomitant]
  19. RANITIDINE. [Concomitant]
     Active Substance: RANITIDINE
  20. SMZ/TMP [Concomitant]
     Active Substance: SULFAMETHOXAZOLE\TRIMETHOPRIM
  21. SUPREP BOWEL PREP [Concomitant]
     Active Substance: MAGNESIUM SULFATE\POTASSIUM SULFATE\SODIUM SULFATE
  22. HUMIRA [Suspect]
     Active Substance: ADALIMUMAB
     Indication: PSORIATIC ARTHROPATHY
     Dosage: ?          OTHER DOSE:40/0.4 MG/ML;?
     Route: 058
     Dates: start: 202002
  23. ALBUTEROL. [Concomitant]
     Active Substance: ALBUTEROL
  24. ELIQUIS [Concomitant]
     Active Substance: APIXABAN
  25. FENOFIBRATE. [Concomitant]
     Active Substance: FENOFIBRATE
  26. PANTOPRAZOLE [Concomitant]
     Active Substance: PANTOPRAZOLE
  27. PREGABALIN. [Concomitant]
     Active Substance: PREGABALIN

REACTIONS (3)
  - Pneumonia [None]
  - Dyspnoea [None]
  - Therapy interrupted [None]
